FAERS Safety Report 5277707-X (Version None)
Quarter: 2007Q1

REPORT INFORMATION
  Report Type: 
  Country: None (occurrence: None)
  Receive Date: 20070327
  Receipt Date: 20070315
  Transmission Date: 20070707
  Serious: Yes (Other)
  Sender: FDA-Public Use
  Company Number: FR-PFIZER INC-2007016506

PATIENT
  Sex: Female
  Weight: 44 kg

DRUGS (3)
  1. LYRICA [Suspect]
     Indication: EPILEPSY
     Dosage: DAILY DOSE:150MG
     Route: 048
     Dates: start: 20061221, end: 20070102
  2. DEPAKENE [Concomitant]
     Indication: EPILEPSY
     Route: 048
  3. URBANYL [Concomitant]
     Indication: EPILEPSY
     Route: 048
     Dates: start: 20030101

REACTIONS (4)
  - ABDOMINAL PAIN [None]
  - CONSTIPATION [None]
  - FLATULENCE [None]
  - GASTROINTESTINAL DISORDER [None]
